FAERS Safety Report 6366431-8 (Version None)
Quarter: 2009Q3

REPORT INFORMATION
  Report Type: 
  Country: None (occurrence: None)
  Receive Date: 20090921
  Receipt Date: 20090911
  Transmission Date: 20100115
  Serious: No
  Sender: FDA-Public Use
  Company Number: IE-SOLVAY-00309004648

PATIENT
  Sex: Male

DRUGS (4)
  1. HYDROMORPHONE [Concomitant]
     Indication: PAIN MANAGEMENT
     Dosage: DAILY DOSE:  UNKNOWN, USED AS REQUIRED
     Route: 065
  2. TESTOSTERONE [Suspect]
     Indication: DRUG USE FOR UNKNOWN INDICATION
     Dosage: DAILY DOSE: 5 MILLIGRAM(S)
     Route: 062
     Dates: start: 20090519
  3. TRANSTEC [Concomitant]
     Indication: PAIN MANAGEMENT
     Dosage: DAILY DOSE:  UNKNOWN, FORM: PATCHES
     Route: 065
  4. ANDRODERM [Suspect]
     Indication: DRUG USE FOR UNKNOWN INDICATION
     Dosage: DAILY DOSE:  UNKNOWN
     Route: 062

REACTIONS (2)
  - ABNORMAL BEHAVIOUR [None]
  - SCREAMING [None]
